FAERS Safety Report 5506188-3 (Version None)
Quarter: 2007Q4

REPORT INFORMATION
  Report Type: 
  Country: None (occurrence: None)
  Receive Date: 20071102
  Receipt Date: 20071102
  Transmission Date: 20080405
  Serious: Yes (Hospitalization)
  Sender: FDA-Public Use
  Company Number: None

PATIENT
  Sex: Male
  Weight: 96 kg

DRUGS (14)
  1. FLUOROURACIL [Suspect]
     Indication: TONGUE NEOPLASM MALIGNANT STAGE UNSPECIFIED
     Dosage: 1014MG IV
     Route: 042
     Dates: start: 20071008, end: 20071012
  2. HYDROXYUREA [Suspect]
     Indication: TONGUE NEOPLASM MALIGNANT STAGE UNSPECIFIED
     Dosage: 500MG PO BID
     Route: 048
     Dates: start: 20071008, end: 20071012
  3. DOCETAXEL [Suspect]
     Indication: TONGUE NEOPLASM MALIGNANT STAGE UNSPECIFIED
     Dosage: 50MG IV
     Route: 042
     Dates: start: 20071008
  4. GELCLAIR [Concomitant]
  5. PROTOCOL MOUTHWASH [Concomitant]
  6. REGLAN [Concomitant]
  7. FENTANYL [Concomitant]
  8. ROXICODONE [Concomitant]
  9. DOMEBORO/BIAFINE [Concomitant]
  10. LOVENOX [Concomitant]
  11. PLAVIX [Concomitant]
  12. ALTACE [Concomitant]
  13. ZOLOFT [Concomitant]
  14. PREVACID [Concomitant]

REACTIONS (3)
  - PULMONARY EMBOLISM [None]
  - PYREXIA [None]
  - RADIATION OESOPHAGITIS [None]
